FAERS Safety Report 9498275 (Version 1)
Quarter: 2013Q3

REPORT INFORMATION
  Report Type: Spontaneous
  Country: US (occurrence: US)
  Receive Date: 20130904
  Receipt Date: 20130904
  Transmission Date: 20140515
  Serious: Yes (Hospitalization)
  Sender: FDA-Public Use
  Company Number: US-BAYER-2013-106248

PATIENT
  Age: 83 Year
  Sex: Male

DRUGS (14)
  1. ACETYLSALICYLIC ACID({=100 MG) [Suspect]
     Dosage: UNK
  2. HEPARIN [Suspect]
     Indication: PULMONARY EMBOLISM
     Dosage: INITIAL LOADING DOSE OF 5000 U
  3. HEPARIN [Suspect]
     Indication: ATRIAL FIBRILLATION
     Dosage: 800 U/HOUR FOR 6 DAYS
     Route: 041
  4. COUMADIN [Concomitant]
     Indication: PULMONARY EMBOLISM
  5. COUMADIN [Concomitant]
     Indication: ATRIAL FIBRILLATION
  6. FLUTICASONE PROPIONATE [Concomitant]
  7. FUROSEMIDE [Concomitant]
     Dosage: UNK
  8. FUROSEMIDE [Concomitant]
     Dosage: 80 MG, BID
  9. HYDRALAZINE HYDROCHLORIDE [Concomitant]
  10. ISOSORBIDE DINITRATE [Concomitant]
  11. LEVOTHYROXINE SODIUM [Concomitant]
  12. METOPROLOL SUCCINATE [Concomitant]
  13. SIMVASTATIN [Concomitant]
  14. TIOTROPIUM BROMIDE [Concomitant]

REACTIONS (2)
  - Dermatitis bullous [Recovered/Resolved]
  - Skin haemorrhage [Recovered/Resolved]
